FAERS Safety Report 15592317 (Version 1)
Quarter: 2018Q4

REPORT INFORMATION
  Report Type: Spontaneous
  Country: BR (occurrence: BR)
  Receive Date: 20181107
  Receipt Date: 20181107
  Transmission Date: 20190205
  Serious: Yes (Other)
  Sender: FDA-Public Use
  Company Number: BR-PROVELL PHARMACEUTICALS-2058544

PATIENT
  Age: 33 Year
  Sex: Female

DRUGS (3)
  1. EUTHYROX [Suspect]
     Active Substance: LEVOTHYROXINE SODIUM
  2. EUTHYROX [Suspect]
     Active Substance: LEVOTHYROXINE SODIUM
     Indication: HYPOTHYROIDISM
  3. EUTHYROX [Suspect]
     Active Substance: LEVOTHYROXINE SODIUM

REACTIONS (6)
  - Malaise [None]
  - Hormone level abnormal [Recovering/Resolving]
  - Thyroid function test abnormal [Recovering/Resolving]
  - Uterine haemorrhage [Recovering/Resolving]
  - General physical health deterioration [None]
  - Drug ineffective [None]
